FAERS Safety Report 12213088 (Version 1)
Quarter: 2016Q1

REPORT INFORMATION
  Report Type: Spontaneous
  Country: CN (occurrence: CN)
  Receive Date: 20160328
  Receipt Date: 20160328
  Transmission Date: 20160526
  Serious: Yes (Hospitalization)
  Sender: FDA-Public Use
  Company Number: CN-ASTRAZENECA-2016SE31582

PATIENT
  Age: 2 Year
  Sex: Male

DRUGS (4)
  1. LOSEC [Suspect]
     Active Substance: OMEPRAZOLE
     Indication: DUODENAL ULCER
     Route: 048
  2. LOSEC [Suspect]
     Active Substance: OMEPRAZOLE
     Indication: DUODENAL ULCER
     Dosage: 10 MG, TWO TIMES A DAY, EVERY OTHER DAY
     Route: 048
  3. LOSEC [Suspect]
     Active Substance: OMEPRAZOLE
     Route: 041
  4. LOSEC [Suspect]
     Active Substance: OMEPRAZOLE
     Indication: DUODENAL ULCER
     Route: 048
     Dates: start: 20160205

REACTIONS (4)
  - Mouth swelling [Unknown]
  - Therapy cessation [Unknown]
  - Visual acuity reduced [Unknown]
  - Melaena [Recovered/Resolved]
